FAERS Safety Report 19149933 (Version 2)
Quarter: 2021Q4

REPORT INFORMATION
  Report Type: Spontaneous
  Country: US (occurrence: US)
  Receive Date: 20210417
  Receipt Date: 20211006
  Transmission Date: 20220303
  Serious: No
  Sender: FDA-Public Use
  Company Number: US-CELGENE-USA-20210402055

PATIENT
  Sex: Male
  Weight: 53.57 kg

DRUGS (4)
  1. REVLIMID [Suspect]
     Active Substance: LENALIDOMIDE
     Indication: Myelodysplastic syndrome
     Dosage: 10 MILLIGRAM
     Route: 048
     Dates: start: 202103
  2. REVLIMID [Suspect]
     Active Substance: LENALIDOMIDE
     Dosage: 5 MILLIGRAM
     Route: 048
     Dates: start: 2021
  3. BENADRYL [Concomitant]
     Active Substance: DIPHENHYDRAMINE HYDROCHLORIDE
     Indication: Product used for unknown indication
     Route: 065
  4. CORTISONE [Concomitant]
     Active Substance: CORTISONE
     Indication: Product used for unknown indication
     Route: 065

REACTIONS (3)
  - Drug intolerance [Unknown]
  - Hypertension [Unknown]
  - Rash [Unknown]

NARRATIVE: CASE EVENT DATE: 20210101
